FAERS Safety Report 4617207-0 (Version None)
Quarter: 2005Q1

REPORT INFORMATION
  Report Type: 
  Country: None (occurrence: None)
  Receive Date: 20050323
  Receipt Date: 20050315
  Transmission Date: 20050727
  Serious: Yes (Hospitalization)
  Sender: FDA-Public Use
  Company Number: PHHO2005AT04390

PATIENT
  Age: 53 Year
  Sex: Female
  Weight: 76 kg

DRUGS (4)
  1. NOLVADEX [Concomitant]
     Indication: BREAST CANCER
     Dosage: 20 MG, QD
     Route: 048
     Dates: start: 20050317
  2. ZOLADEX [Concomitant]
     Indication: BREAST CANCER
     Dosage: 3.6 MG, QMO
     Route: 058
     Dates: start: 20050317
  3. L-THYROXIN [Concomitant]
     Indication: GOITRE
     Dosage: 25 UG, UNK
     Route: 048
     Dates: start: 19940505
  4. ZOLEDRONATE [Suspect]
     Indication: BREAST CANCER
     Dosage: 4 MG, UNK
     Route: 042
     Dates: start: 20050309

REACTIONS (7)
  - CELLULITIS [None]
  - CELLULITIS ORBITAL [None]
  - CONJUNCTIVITIS [None]
  - EXOPHTHALMOS [None]
  - EYE MOVEMENT DISORDER [None]
  - EYELID OEDEMA [None]
  - VISUAL DISTURBANCE [None]
